FAERS Safety Report 13226314 (Version 1)
Quarter: 2017Q1

REPORT INFORMATION
  Report Type: Spontaneous
  Country: US (occurrence: US)
  Receive Date: 20170213
  Receipt Date: 20170213
  Transmission Date: 20170428
  Serious: Yes (Disabling)
  Sender: FDA-Public Use
  Company Number: None

PATIENT
  Age: 62 Year
  Sex: Male
  Weight: 87.17 kg

DRUGS (3)
  1. FOSINOPRIL [Suspect]
     Active Substance: FOSINOPRIL
  2. DOCOLACE [Concomitant]
  3. LISINOPRIL. [Suspect]
     Active Substance: LISINOPRIL

REACTIONS (1)
  - Visual impairment [None]

NARRATIVE: CASE EVENT DATE: 20040910
